FAERS Safety Report 5608368-5 (Version None)
Quarter: 2008Q1

REPORT INFORMATION
  Report Type: 
  Country: None (occurrence: None)
  Receive Date: 20080130
  Receipt Date: 20080120
  Transmission Date: 20080703
  Serious: Yes (Other)
  Sender: FDA-Public Use
  Company Number: US-ELI_LILLY_AND_COMPANY-US200801004270

PATIENT
  Sex: Female

DRUGS (11)
  1. BYETTA [Suspect]
     Dosage: 5 UG, 2/D
     Route: 058
     Dates: start: 20061001, end: 20061101
  2. BYETTA [Suspect]
     Dosage: 10 UG, 2/D
     Route: 058
     Dates: start: 20061101
  3. GLUCOPHAGE XR [Concomitant]
     Dosage: 1500 MG, EACH MORNING
  4. GLUCOPHAGE XR [Concomitant]
     Dosage: 1000 MG, EACH EVENING
  5. GLIMEPIRIDE [Concomitant]
     Dosage: 1 MG, DAILY (1/D)
     Route: 048
  6. LISINOPRIL [Concomitant]
     Indication: BLOOD PRESSURE
     Dosage: 60 MG, EACH MORNING
     Route: 048
  7. NIFEDIAC CC [Concomitant]
     Indication: HYPERTENSION
     Dosage: 30 MG, DAILY (1/D)
     Route: 048
  8. OSCAL [Concomitant]
     Dosage: 500 MG, 3/D
     Route: 048
  9. MULTI-VITAMIN [Concomitant]
     Dosage: UNK, UNKNOWN
  10. ASPIRIN [Concomitant]
     Dosage: 81 MG, DAILY (1/D)
     Route: 048
  11. NASONEX [Concomitant]
     Indication: NASAL CONGESTION
     Dosage: UNK, UNKNOWN

REACTIONS (2)
  - BLOOD GLUCOSE INCREASED [None]
  - BREAST CANCER [None]
